FAERS Safety Report 21506198 (Version 1)
Quarter: 2022Q4

REPORT INFORMATION
  Report Type: Spontaneous
  Country: JP (occurrence: JP)
  Receive Date: 20221026
  Receipt Date: 20221026
  Transmission Date: 20230113
  Serious: Yes (Other)
  Sender: FDA-Public Use
  Company Number: JP-DSJP-DSJ-2022-137998

PATIENT

DRUGS (1)
  1. DENOSUMAB [Suspect]
     Active Substance: DENOSUMAB
     Indication: Product used for unknown indication
     Dosage: UNK, 2022/7/13
     Route: 065

REACTIONS (3)
  - Metastases to bone [Not Recovered/Not Resolved]
  - Nutritional condition abnormal [Not Recovered/Not Resolved]
  - Blood calcium increased [Not Recovered/Not Resolved]
